FAERS Safety Report 13599505 (Version 1)
Quarter: 2017Q2

REPORT INFORMATION
  Report Type: Report from Study
  Country: FR (occurrence: FR)
  Receive Date: 20170531
  Receipt Date: 20170531
  Transmission Date: 20170830
  Serious: Yes (Other)
  Sender: FDA-Public Use
  Company Number: FR-MYLANLABS-2017M1032447

PATIENT

DRUGS (2)
  1. CISPLATIN. [Suspect]
     Active Substance: CISPLATIN
     Indication: THYMOMA
     Dosage: 50 MG/M2; FOR A MAXIMUM DOSE OF 100 MG
     Route: 038
  2. MITOMYCIN. [Suspect]
     Active Substance: MITOMYCIN
     Indication: THYMOMA
     Dosage: 25 MG/M2; FOR A MAXIMUM DOSE OF 60 MG
     Route: 038

REACTIONS (2)
  - Arrhythmia [Unknown]
  - Bone marrow failure [Recovered/Resolved]
